FAERS Safety Report 5143005-8 (Version None)
Quarter: 2006Q4

REPORT INFORMATION
  Report Type: 
  Country: None (occurrence: None)
  Receive Date: 20061103
  Receipt Date: 20060302
  Transmission Date: 20070319
  Serious: Yes (Death, Hospitalization)
  Sender: FDA-Public Use
  Company Number: US-ELI_LILLY_AND_COMPANY-US200605002370

PATIENT
  Age: 54 Year
  Sex: Male
  Weight: 90.702 kg

DRUGS (2)
  1. ZYPREXA [Suspect]
     Indication: SCHIZOPHRENIA
     Dates: start: 19980601, end: 20051201
  2. RISPERDAL                               /SWE/ [Concomitant]
     Dates: start: 20040401, end: 20060201

REACTIONS (6)
  - BLOOD CHOLESTEROL INCREASED [None]
  - DEATH [None]
  - DECUBITUS ULCER [None]
  - DIABETES MELLITUS [None]
  - HYPERGLYCAEMIA [None]
  - HYPERTENSION [None]
